FAERS Safety Report 8400304 (Version 2)
Quarter: 2013Q1

REPORT INFORMATION
  Report Type: Spontaneous
  Country: US (occurrence: US)
  Receive Date: 20120210
  Receipt Date: 20130219
  Transmission Date: 20140127
  Serious: No
  Sender: FDA-Public Use
  Company Number: US-BRISTOL-MYERS SQUIBB COMPANY-16311391

PATIENT
  Age: 65 Year
  Sex: Male
  Weight: 117.91 kg

DRUGS (1)
  1. ORENCIA FOR INJ [Suspect]
     Indication: RHEUMATOID ARTHRITIS
     Dosage: INFUSION:5, LAST TREATMENT:16-APR-2012
     Route: 042

REACTIONS (3)
  - Pruritus [Unknown]
  - Limb discomfort [Unknown]
  - Upper respiratory tract infection [Unknown]
